FAERS Safety Report 21449484 (Version 1)
Quarter: 2022Q4

REPORT INFORMATION
  Report Type: Spontaneous
  Country: NL (occurrence: None)
  Receive Date: 20221013
  Receipt Date: 20221013
  Transmission Date: 20230113
  Serious: Yes (Life-Threatening, Other)
  Sender: FDA-Public Use
  Company Number: None

PATIENT
  Sex: Female
  Weight: 60 kg

DRUGS (1)
  1. CEFTRIAXONE [Suspect]
     Active Substance: CEFTRIAXONE
     Indication: Retroperitoneal abscess
     Route: 065
     Dates: start: 20220823, end: 20220824

REACTIONS (4)
  - Rash erythematous [Recovered/Resolved]
  - Pharyngeal oedema [Recovered/Resolved]
  - Anaphylactic reaction [Recovered/Resolved]
  - Hypotension [Recovered/Resolved]
